FAERS Safety Report 6335713-8 (Version None)
Quarter: 2009Q3

REPORT INFORMATION
  Report Type: 
  Country: None (occurrence: None)
  Receive Date: 20090831
  Receipt Date: 20090824
  Transmission Date: 20100115
  Serious: Yes (Hospitalization)
  Sender: FDA-Public Use
  Company Number: US-AMGEN-KDL360175

PATIENT
  Age: 86 Year
  Sex: Female

DRUGS (3)
  1. PROCRIT [Suspect]
     Indication: RENAL FAILURE CHRONIC
     Route: 042
     Dates: start: 20090806
  2. UNSPECIFIED ANTIHYPERTENSIVE AGENT [Concomitant]
  3. VICODIN [Concomitant]
     Dates: start: 20090814

REACTIONS (6)
  - ARTHRALGIA [None]
  - CONTUSION [None]
  - ERYTHEMA [None]
  - INDURATION [None]
  - MUSCULOSKELETAL PAIN [None]
  - PAIN [None]
